FAERS Safety Report 8485923 (Version 4)
Quarter: 2016Q3

REPORT INFORMATION
  Report Type: Spontaneous
  Country: BR (occurrence: BR)
  Receive Date: 20120331
  Receipt Date: 20160728
  Transmission Date: 20161109
  Serious: Yes (Hospitalization, Other)
  Sender: FDA-Public Use
  Company Number: BR-AMGEN-BRASP2012018692

PATIENT
  Age: 66 Year
  Sex: Male
  Weight: 101 kg

DRUGS (26)
  1. LOSARTAN. [Concomitant]
     Active Substance: LOSARTAN
     Dosage: 50 MG, 2X/DAY
  2. HYDROXYCHLOROQUINE SULFATE. [Concomitant]
     Active Substance: HYDROXYCHLOROQUINE SULFATE
     Dosage: 400 MG, 1X/DAY
  3. NIMESULIDE [Concomitant]
     Active Substance: NIMESULIDE
     Dosage: STRENGTH 50MG
  4. AMITRIPTYLINE [Concomitant]
     Active Substance: AMITRIPTYLINE
     Dosage: UNK
  5. ENBREL [Suspect]
     Active Substance: ETANERCEPT
     Dosage: 50 MG, ONCE WEEKLY
     Route: 058
     Dates: end: 201408
  6. TRAMADOL. [Concomitant]
     Active Substance: TRAMADOL
     Dosage: STRENGTH 55MG
  7. FOLIC ACID. [Concomitant]
     Active Substance: FOLIC ACID
     Dosage: STRENGTH 10 MG , UNK
  8. CYCLOBENZAPRINE [Concomitant]
     Active Substance: CYCLOBENZAPRINE
     Dosage: STRENGTH 7.5 MG
  9. METHOTREXATE. [Concomitant]
     Active Substance: METHOTREXATE
     Dosage: STRENGTH 2.5MG, UNK
  10. HYDROXYCHLOROQUINE SULFATE. [Concomitant]
     Active Substance: HYDROXYCHLOROQUINE SULFATE
     Dosage: 400 MG, 1X/DAY
  11. NIMESULIDE [Concomitant]
     Active Substance: NIMESULIDE
     Dosage: STRENGTH 50 MG, UNK
  12. CYCLOBENZAPRINE [Concomitant]
     Active Substance: CYCLOBENZAPRINE
     Dosage: STRENGTH 7.5 MG
  13. ATENOLOL. [Concomitant]
     Active Substance: ATENOLOL
     Dosage: 25 MG, 2X/DAY (EVERY 12 HOURS)
  14. NIMESULIDE [Concomitant]
     Active Substance: NIMESULIDE
     Dosage: STRENGTH 50MG
  15. TRAMADOL. [Concomitant]
     Active Substance: TRAMADOL
     Dosage: STRENGTH 55MG , UNK
  16. METHOTREXATE. [Concomitant]
     Active Substance: METHOTREXATE
     Dosage: STRENGTH 2.5MG
  17. ENBREL [Suspect]
     Active Substance: ETANERCEPT
     Indication: RHEUMATOID ARTHRITIS
     Dosage: 50 MG, ONCE WEEKLY
     Route: 058
     Dates: start: 201201
  18. ATENOLOL. [Concomitant]
     Active Substance: ATENOLOL
     Indication: BLOOD PRESSURE INCREASED
     Dosage: 25 MG, 2X/DAY (EVERY 12 HOURS)
  19. FOLIC ACID. [Concomitant]
     Active Substance: FOLIC ACID
     Dosage: STRENGTH 10MG
  20. CYCLOBENZAPRINE [Concomitant]
     Active Substance: CYCLOBENZAPRINE
     Dosage: STRENGTH 7.5 MG, UNK
  21. PREDNISONE. [Concomitant]
     Active Substance: PREDNISONE
     Dosage: UNK
  22. NIFEDIPIN RETARD [Concomitant]
     Dosage: 20 MG, BID
  23. LOSARTAN. [Concomitant]
     Active Substance: LOSARTAN
     Indication: BLOOD PRESSURE INCREASED
     Dosage: 50 MG, 2X/DAY
  24. TRAMADOL. [Concomitant]
     Active Substance: TRAMADOL
     Dosage: STRENGTH 55MG
  25. FOLIC ACID. [Concomitant]
     Active Substance: FOLIC ACID
     Dosage: STRENGTH 10MG
  26. METHOTREXATE. [Concomitant]
     Active Substance: METHOTREXATE
     Dosage: STRENGTH 2.5MG

REACTIONS (9)
  - Feeling abnormal [Recovered/Resolved]
  - Haemorrhage [Not Recovered/Not Resolved]
  - Anxiety [Unknown]
  - Gastrointestinal disorder [Recovered/Resolved]
  - Decreased immune responsiveness [Unknown]
  - Skin sensitisation [Unknown]
  - Hypertension [Unknown]
  - Erythema [Unknown]
  - Herpes zoster [Unknown]

NARRATIVE: CASE EVENT DATE: 20120511
